FAERS Safety Report 25983298 (Version 5)
Quarter: 2025Q4

REPORT INFORMATION
  Report Type: Report from Study
  Country: US (occurrence: US)
  Receive Date: 20251031
  Receipt Date: 20251121
  Transmission Date: 20260117
  Serious: No
  Sender: SANDOZ
  Company Number: US-SANDOZ-SDZ2025US081306

PATIENT
  Age: 6 Year
  Sex: Female

DRUGS (6)
  1. OMNITROPE [Suspect]
     Active Substance: SOMATROPIN
     Indication: Hypopituitarism
     Dosage: 0.8 MG, 6 DAYS A WEEK (STRENGTH 10 MG/1.5 ML) IN CARTRIDGE
     Route: 058
     Dates: start: 20251029
  2. OMNITROPE [Suspect]
     Active Substance: SOMATROPIN
     Indication: Hypopituitarism
     Dosage: 0.8 MG, 6 DAYS A WEEK (STRENGTH 10 MG/1.5 ML) IN CARTRIDGE
     Route: 058
     Dates: start: 20251029
  3. OMNITROPE [Suspect]
     Active Substance: SOMATROPIN
     Dosage: 0.8 MG, 6 DAYS A WEEK (STRENGTH 10 MG/1.5 ML) IN CARTRIDGE
     Route: 058
     Dates: start: 20251030
  4. OMNITROPE [Suspect]
     Active Substance: SOMATROPIN
     Dosage: 0.8 MG, 6 DAYS A WEEK (STRENGTH 10 MG/1.5 ML) IN CARTRIDGE
     Route: 058
     Dates: start: 20251030
  5. OMNITROPE [Suspect]
     Active Substance: SOMATROPIN
     Dosage: 0.8 MG,6 DAYS A WEEK
     Route: 058
     Dates: start: 20251113
  6. OMNITROPE [Suspect]
     Active Substance: SOMATROPIN
     Dosage: 0.8 MG,6 DAYS A WEEK
     Route: 058
     Dates: start: 20251113

REACTIONS (3)
  - Incorrect dose administered by device [Unknown]
  - Wrong technique in product usage process [Unknown]
  - Device leakage [Unknown]

NARRATIVE: CASE EVENT DATE: 20251001
